FAERS Safety Report 5981716-2 (Version None)
Quarter: 2008Q4

REPORT INFORMATION
  Report Type: 
  Country: None (occurrence: None)
  Receive Date: 20081205
  Receipt Date: 20081201
  Transmission Date: 20090506
  Serious: Yes (Other)
  Sender: FDA-Public Use
  Company Number: JP-ROXANE LABORATORIES, INC.-2008-RO-00319RO

PATIENT
  Sex: Female
  Weight: 3 kg

DRUGS (1)
  1. CALCIUM GLUCONATE [Suspect]
     Indication: HYPOCALCAEMIA
     Route: 042

REACTIONS (4)
  - CALCINOSIS [None]
  - ERYTHEMA [None]
  - EXTRAVASATION [None]
  - OEDEMA [None]
